FAERS Safety Report 17987905 (Version 1)
Quarter: 2020Q3

REPORT INFORMATION
  Report Type: Spontaneous
  Country: US (occurrence: US)
  Receive Date: 20200706
  Receipt Date: 20200706
  Transmission Date: 20201103
  Serious: Yes (Death)
  Sender: FDA-Public Use
  Company Number: None

PATIENT
  Age: 31 Year
  Sex: Female
  Weight: 106.7 kg

DRUGS (23)
  1. METHYLPERDNISOLONE TAPPER DOSE [Concomitant]
     Dates: start: 20200607, end: 20200618
  2. PROTONIX [Concomitant]
     Active Substance: PANTOPRAZOLE SODIUM
     Dates: start: 20200615, end: 20200705
  3. ZINC. [Concomitant]
     Active Substance: ZINC
     Dates: start: 20200609, end: 20200705
  4. VANCOMYCIN [Concomitant]
     Active Substance: VANCOMYCIN
     Dates: start: 20200619, end: 20200622
  5. TPN [Concomitant]
     Active Substance: AMINO ACIDS\DEXTROSE\ELECTROLYTES NOS\SOYBEAN OIL
     Dates: start: 20200616, end: 20200626
  6. LEVOPED DRIP [Concomitant]
     Dates: start: 20200614, end: 20200705
  7. ASCOBIC ACID [Concomitant]
     Dates: start: 20200609, end: 20200705
  8. HUMALOG [Concomitant]
     Active Substance: INSULIN LISPRO
     Dates: start: 20200608, end: 20200705
  9. ALBUTEROL. [Concomitant]
     Active Substance: ALBUTEROL
     Dates: start: 20200607, end: 20200621
  10. MICAFUNGIN. [Concomitant]
     Active Substance: MICAFUNGIN SODIUM
     Dates: start: 20200613, end: 20200615
  11. TOCIZILUMAB [Concomitant]
     Dates: start: 20200615, end: 20200615
  12. SELENIUM [Concomitant]
     Active Substance: SELENIUM
     Dates: start: 20200609, end: 20200705
  13. FENTANY [Concomitant]
     Dates: start: 20200612, end: 20200705
  14. VERSED DRIP [Concomitant]
     Dates: start: 20200614, end: 20200705
  15. REMDESIVIR. [Suspect]
     Active Substance: REMDESIVIR
     Indication: COVID-19
     Route: 042
     Dates: start: 20200610, end: 20200610
  16. CHOLECALCIFEROL [Concomitant]
     Active Substance: CHOLECALCIFEROL
     Dates: start: 20200609, end: 20200705
  17. MEROPENEM. [Concomitant]
     Active Substance: MEROPENEM
     Dates: start: 20200619, end: 20200622
  18. HEPARIN SUBCUT [Concomitant]
     Dates: start: 20200627, end: 20200705
  19. FONDAPRINUX [Concomitant]
     Active Substance: FONDAPARINUX
     Dates: start: 20200621, end: 20200626
  20. REMDESIVIR. [Suspect]
     Active Substance: REMDESIVIR
     Indication: COVID-19
     Route: 042
     Dates: start: 20200611, end: 20200620
  21. HEPARIN [Concomitant]
     Active Substance: HEPARIN SODIUM
     Dates: start: 20200608, end: 20200620
  22. ROCURONIUM DRIP [Concomitant]
     Dates: start: 20200610, end: 20200705
  23. VASOPRESSIN. [Concomitant]
     Active Substance: VASOPRESSIN
     Dates: start: 20200620, end: 20200622

REACTIONS (7)
  - Thrombocytopenia [None]
  - Respiratory failure [None]
  - Klebsiella infection [None]
  - Pneumonia pseudomonal [None]
  - Haemoglobin decreased [None]
  - Haemodynamic instability [None]
  - Multiple organ dysfunction syndrome [None]

NARRATIVE: CASE EVENT DATE: 20200705
